FAERS Safety Report 4382895-3 (Version None)
Quarter: 2004Q2

REPORT INFORMATION
  Report Type: 
  Country: None (occurrence: None)
  Receive Date: 20040617
  Receipt Date: 20040604
  Transmission Date: 20050107
  Serious: Yes (Hospitalization)
  Sender: FDA-Public Use
  Company Number: 2004-BP-04485BP

PATIENT
  Age: 65 Year
  Sex: Male

DRUGS (2)
  1. ATROVENT [Suspect]
     Indication: ASTHMA
     Dosage: 108 MCG (18 MCG, 3 PUFFS TID), IH
     Route: 055
     Dates: start: 20040526
  2. AZMACORT [Concomitant]

REACTIONS (3)
  - BLOOD PRESSURE INCREASED [None]
  - DYSPNOEA [None]
  - EPISTAXIS [None]
